FAERS Safety Report 7774783-7 (Version None)
Quarter: 2011Q3

REPORT INFORMATION
  Report Type: 
  Country: None (occurrence: None)
  Receive Date: 20110923
  Receipt Date: 20110912
  Transmission Date: 20111222
  Serious: Yes (Death, Hospitalization)
  Sender: FDA-Public Use
  Company Number: US-ACTELION-A-NJ2011-52449

PATIENT

DRUGS (7)
  1. COUMADIN [Concomitant]
  2. VENTAVIS [Suspect]
     Indication: PULMONARY ARTERIAL HYPERTENSION
     Dosage: UNK
     Route: 055
     Dates: start: 20100726, end: 20110701
  3. TRACLEER [Suspect]
     Indication: PULMONARY ARTERIAL HYPERTENSION
     Dosage: UNK
     Route: 048
     Dates: start: 20100708, end: 20110701
  4. REVATIO [Concomitant]
  5. CALCIUM CHANNEL BLOCKERS [Concomitant]
  6. OXYGEN [Concomitant]
  7. TRACLEER [Suspect]
     Dosage: UNK
     Route: 048
     Dates: end: 20110904

REACTIONS (8)
  - SEPSIS [None]
  - THROMBOSIS [None]
  - PULMONARY EMBOLISM [None]
  - INFECTION [None]
  - OXYGEN SATURATION DECREASED [None]
  - RESPIRATORY ARREST [None]
  - CHEST PAIN [None]
  - PYREXIA [None]
